FAERS Safety Report 25536722 (Version 3)
Quarter: 2025Q3

REPORT INFORMATION
  Report Type: Report from Study
  Country: US (occurrence: US)
  Receive Date: 20250709
  Receipt Date: 20250903
  Transmission Date: 20251020
  Serious: Yes (Hospitalization)
  Sender: ABBVIE
  Company Number: US-ABBVIE-6333003

PATIENT
  Age: 77 Year
  Sex: Male

DRUGS (2)
  1. VENCLEXTA [Suspect]
     Active Substance: VENETOCLAX
     Indication: Acute myeloid leukaemia
     Dosage: LAST ADMIN DATE: 2025
     Route: 048
     Dates: start: 20250307
  2. VENCLEXTA [Suspect]
     Active Substance: VENETOCLAX
     Indication: Acute myeloid leukaemia
     Dosage: FIRST AND LAST ADMIN DATE: 2025
     Route: 048

REACTIONS (10)
  - White blood cell count decreased [Unknown]
  - Platelet disorder [Unknown]
  - Pneumonia [Unknown]
  - Pericardial effusion [Unknown]
  - Pyrexia [Unknown]
  - Sepsis [Unknown]
  - Platelet count decreased [Unknown]
  - Fungal infection [Unknown]
  - Rash [Unknown]
  - Dyspnoea [Unknown]

NARRATIVE: CASE EVENT DATE: 20250101
